FAERS Safety Report 25995981 (Version 1)
Quarter: 2025Q4

REPORT INFORMATION
  Report Type: Spontaneous
  Country: JP (occurrence: JP)
  Receive Date: 20251104
  Receipt Date: 20251104
  Transmission Date: 20260118
  Serious: Yes (Other)
  Sender: PFIZER
  Company Number: JP-PFIZER INC-PV202500128324

PATIENT
  Age: 82 Year
  Sex: Female

DRUGS (1)
  1. ELREXFIO [Suspect]
     Active Substance: ELRANATAMAB-BCMM
     Dosage: 76 MG
     Route: 058
     Dates: start: 202508

REACTIONS (5)
  - Cytokine release syndrome [Unknown]
  - Hepatitis B reactivation [Unknown]
  - Bacterial sepsis [Unknown]
  - Liver disorder [Unknown]
  - Cytomegalovirus test positive [Unknown]
